FAERS Safety Report 16992164 (Version 1)
Quarter: 2019Q4

REPORT INFORMATION
  Report Type: Spontaneous
  Country: US (occurrence: US)
  Receive Date: 20191104
  Receipt Date: 20191104
  Transmission Date: 20200122
  Serious: No
  Sender: FDA-Public Use
  Company Number: None

PATIENT
  Age: 46 Year
  Sex: Female
  Weight: 79.38 kg

DRUGS (1)
  1. MIRENA [Suspect]
     Active Substance: LEVONORGESTREL

REACTIONS (8)
  - Hypertension [None]
  - Arthralgia [None]
  - Depression [None]
  - Anxiety [None]
  - Alopecia [None]
  - Palpitations [None]
  - Panic attack [None]
  - Abdominal pain [None]

NARRATIVE: CASE EVENT DATE: 20190812
